FAERS Safety Report 10264868 (Version 1)
Quarter: 2014Q2

REPORT INFORMATION
  Report Type: Spontaneous
  Country: FR (occurrence: FR)
  Receive Date: 20140627
  Receipt Date: 20140627
  Transmission Date: 20141212
  Serious: Yes (Life-Threatening)
  Sender: FDA-Public Use
  Company Number: FR-NOVOPROD-414209

PATIENT
  Age: 43 Year
  Sex: Male

DRUGS (8)
  1. NOVORAPID [Suspect]
     Indication: TYPE 2 DIABETES MELLITUS
     Dosage: UNK
     Route: 058
     Dates: start: 2006, end: 20131201
  2. PERINDOPRIL [Concomitant]
     Dosage: UNK
  3. COAPROVEL [Concomitant]
     Dosage: COAPROVEL 300 MG/12.5 MG
  4. HYPERIUM [Concomitant]
     Dosage: UNK
  5. AMLOR [Concomitant]
     Dosage: UNK
  6. SIMVASTATINE [Concomitant]
     Dosage: UNK
  7. KARDEGIC [Concomitant]
     Dosage: UNK
  8. MOPRAL                             /00661201/ [Concomitant]
     Dosage: UNK

REACTIONS (4)
  - Cardio-respiratory arrest [Recovered/Resolved]
  - Polyneuropathy [Recovered/Resolved]
  - Hypoglycaemia [Recovered/Resolved]
  - Convulsion [Recovered/Resolved]
